FAERS Safety Report 18734058 (Version 2)
Quarter: 2021Q4

REPORT INFORMATION
  Report Type: Spontaneous
  Country: US (occurrence: US)
  Receive Date: 20210113
  Receipt Date: 20211004
  Transmission Date: 20220303
  Serious: Yes (Hospitalization, Other)
  Sender: FDA-Public Use
  Company Number: None

PATIENT

DRUGS (2)
  1. GEMCITABINE [Suspect]
     Active Substance: GEMCITABINE
     Indication: Pancreatic carcinoma stage IV
     Dosage: UNK (CYCLE 2)
     Route: 065
  2. PACLITAXEL [Concomitant]
     Active Substance: PACLITAXEL
     Indication: Pancreatic carcinoma stage IV
     Dosage: UNK (CYCLE 2)
     Route: 065

REACTIONS (7)
  - Renal tubular necrosis [Not Recovered/Not Resolved]
  - Nephropathy toxic [Not Recovered/Not Resolved]
  - Haemolytic anaemia [Unknown]
  - Acute kidney injury [Not Recovered/Not Resolved]
  - Thrombotic microangiopathy [Not Recovered/Not Resolved]
  - Thrombocytopenia [Unknown]
  - Leukopenia [Unknown]
